FAERS Safety Report 24141811 (Version 1)
Quarter: 2024Q3

REPORT INFORMATION
  Report Type: Spontaneous
  Country: GB (occurrence: GB)
  Receive Date: 20240726
  Receipt Date: 20240726
  Transmission Date: 20241017
  Serious: Yes (Death, Other)
  Sender: B BRAUN
  Company Number: GB-B.Braun Medical Inc.-2159650

PATIENT
  Age: 64 Year
  Sex: Male
  Weight: 89 kg

DRUGS (7)
  1. SODIUM CHLORIDE [Suspect]
     Active Substance: SODIUM CHLORIDE
     Indication: Medication dilution
     Route: 042
  2. ADCETRIS [Suspect]
     Active Substance: BRENTUXIMAB VEDOTIN
  3. PREDNISOLONE [Concomitant]
     Active Substance: PREDNISOLONE
  4. FLUCLOXACILLIN [Suspect]
     Active Substance: FLUCLOXACILLIN
  5. PENICILLIN G [Suspect]
     Active Substance: PENICILLIN G
  6. COTRIMOXAZOLE [Suspect]
     Active Substance: SULFAMETHOXAZOLE\TRIMETHOPRIM
  7. ACYCLOVIR [Suspect]
     Active Substance: ACYCLOVIR

REACTIONS (6)
  - Death [Fatal]
  - Product use issue [Fatal]
  - Off label use [Fatal]
  - Infection [Fatal]
  - Cellulitis [Fatal]
  - Cardiovascular disorder [Fatal]
